FAERS Safety Report 4907885-0 (Version None)
Quarter: 2006Q1

REPORT INFORMATION
  Report Type: 
  Country: None (occurrence: None)
  Receive Date: 20060208
  Receipt Date: 20060124
  Transmission Date: 20060701
  Serious: Yes (Life-Threatening)
  Sender: FDA-Public Use
  Company Number: S06-GER-00408-01

PATIENT
  Sex: Male

DRUGS (1)
  1. CIPRAMIL                (CITALOPRAM HYDROBROMIDE) [Suspect]

REACTIONS (2)
  - PLATELET DISORDER [None]
  - PULMONARY HAEMORRHAGE [None]
